FAERS Safety Report 9598562 (Version 1)
Quarter: 2013Q4

REPORT INFORMATION
  Report Type: Spontaneous
  Country: US (occurrence: US)
  Receive Date: 20131004
  Receipt Date: 20131004
  Transmission Date: 20140711
  Serious: No
  Sender: FDA-Public Use
  Company Number: US-AMGEN-USASP2013024713

PATIENT
  Age: 75 Year
  Sex: Female

DRUGS (10)
  1. ENBREL [Suspect]
     Indication: PRODUCT USED FOR UNKNOWN INDICATION
     Dosage: 50 MG, WEEKLY AS DIRECTED
  2. NAMENDA [Concomitant]
     Dosage: 5 MG, UNK
  3. DONEPEZIL [Concomitant]
     Dosage: 5 MG, UNK
  4. METHOTREXATE [Concomitant]
     Dosage: 2.5 MG, UNK
  5. SYNTHROID [Concomitant]
     Dosage: 50 MUG, UNK
  6. VITAMIN C                          /00008001/ [Concomitant]
     Dosage: 500 MG, UNK
  7. FOLIC ACID [Concomitant]
     Dosage: UNK
  8. VITAMIN D                          /00107901/ [Concomitant]
     Dosage: 2000 UNIT, UNK
  9. ALEVE [Concomitant]
     Dosage: 220 MG, UNK
  10. VITAMIN D2 [Concomitant]
     Dosage: 2000 UNIT, UNK

REACTIONS (1)
  - Pain [Unknown]
